FAERS Safety Report 23257576 (Version 1)
Quarter: 2023Q4

REPORT INFORMATION
  Report Type: Spontaneous
  Country: US (occurrence: US)
  Receive Date: 20231204
  Receipt Date: 20231204
  Transmission Date: 20240109
  Serious: No
  Sender: FDA-Public Use
  Company Number: US-SERVIER-S23013582

PATIENT

DRUGS (1)
  1. ONCASPAR [Suspect]
     Active Substance: PEGASPARGASE
     Indication: Product used for unknown indication
     Dosage: UNK
     Route: 042
     Dates: start: 20230410, end: 20230410

REACTIONS (2)
  - Hypersensitivity [Recovered/Resolved]
  - Enzyme activity abnormal [Recovered/Resolved]

NARRATIVE: CASE EVENT DATE: 20230410
